FAERS Safety Report 6538528-0 (Version None)
Quarter: 2010Q1

REPORT INFORMATION
  Report Type: 
  Country: None (occurrence: None)
  Receive Date: 20100113
  Receipt Date: 20100113
  Transmission Date: 20100710
  Serious: Yes (Hospitalization)
  Sender: FDA-Public Use
  Company Number: None

PATIENT
  Sex: Male
  Weight: 63.4582 kg

DRUGS (2)
  1. IMATINIB 200MG [Suspect]
     Indication: GASTROINTESTINAL STROMAL TUMOUR
     Dosage: IMATINIB 200 MG DAILY PO
     Route: 048
     Dates: start: 20091214
  2. SUNITINIB [Suspect]
     Dosage: SUNITINIB 25 DAILY PO
     Route: 048

REACTIONS (1)
  - CHOLELITHIASIS [None]
